FAERS Safety Report 8535217-8 (Version None)
Quarter: 2012Q3

REPORT INFORMATION
  Report Type: 
  Country: None (occurrence: None)
  Receive Date: 20120724
  Receipt Date: 20120709
  Transmission Date: 20120928
  Serious: Yes (Hospitalization)
  Sender: FDA-Public Use
  Company Number: US-009507513-1207USA008333

PATIENT

DRUGS (4)
  1. HEXADROL [Suspect]
     Route: 048
  2. VORINOSTAT [Suspect]
     Indication: BRAIN STEM GLIOMA
     Dosage: 230 MG/M2, QD
     Route: 048
     Dates: start: 20120625
  3. ZOFRAN [Concomitant]
  4. ALBUTEROL [Concomitant]

REACTIONS (3)
  - SINUS BRADYCARDIA [None]
  - HAEMORRHAGE INTRACRANIAL [None]
  - HEADACHE [None]
